FAERS Safety Report 17578684 (Version 1)
Quarter: 2020Q1

REPORT INFORMATION
  Report Type: Spontaneous
  Country: US (occurrence: US)
  Receive Date: 20200324
  Receipt Date: 20200324
  Transmission Date: 20200409
  Serious: Yes (Hospitalization)
  Sender: FDA-Public Use
  Company Number: US-NOVOPROD-714544

PATIENT
  Sex: Female

DRUGS (1)
  1. NOVOLOG [Suspect]
     Active Substance: INSULIN ASPART
     Indication: PRODUCT USED FOR UNKNOWN INDICATION
     Dosage: UNK
     Route: 058

REACTIONS (7)
  - Vision blurred [Unknown]
  - Feeling hot [Unknown]
  - Dizziness [Unknown]
  - Ear discomfort [Unknown]
  - Pruritus [Unknown]
  - Heart rate increased [Unknown]
  - Vomiting [Unknown]
